FAERS Safety Report 21921674 (Version 10)
Quarter: 2023Q1

REPORT INFORMATION
  Report Type: Report from Study
  Country: BR (occurrence: None)
  Receive Date: 20230127
  Receipt Date: 20230321
  Transmission Date: 20230418
  Serious: Yes (Death, Life-Threatening, Hospitalization)
  Sender: FDA-Public Use
  Company Number: BR-Eisai Medical Research-EC-2023-132846

PATIENT
  Age: 75 Year
  Sex: Male
  Weight: 59.4 kg

DRUGS (8)
  1. LENVATINIB [Suspect]
     Active Substance: LENVATINIB
     Indication: Hepatocellular carcinoma
     Route: 048
     Dates: start: 20221214, end: 20221227
  2. PEMBROLIZUMAB [Suspect]
     Active Substance: PEMBROLIZUMAB
     Indication: Hepatocellular carcinoma
     Route: 041
     Dates: start: 20221214, end: 20221214
  3. VALSARTAN [Concomitant]
     Active Substance: VALSARTAN
     Dates: start: 200801
  4. EZETIMIBE [Concomitant]
     Active Substance: EZETIMIBE
     Dates: start: 200801
  5. ASPIRIN [Concomitant]
     Active Substance: ASPIRIN
     Dates: start: 200801
  6. CHOLECALCIFEROL [Concomitant]
     Active Substance: CHOLECALCIFEROL
     Dates: start: 201401
  7. ATORVASTATIN [Concomitant]
     Active Substance: ATORVASTATIN
     Dates: start: 200801
  8. ATENOLOL [Concomitant]
     Active Substance: ATENOLOL
     Dates: start: 202210

REACTIONS (4)
  - Immune-mediated hepatitis [Fatal]
  - Nephritis [Not Recovered/Not Resolved]
  - Pancreatitis [Recovered/Resolved]
  - Diarrhoea [Recovering/Resolving]

NARRATIVE: CASE EVENT DATE: 20221224
